FAERS Safety Report 11619181 (Version 1)
Quarter: 2015Q4

REPORT INFORMATION
  Report Type: Report from Study
  Country: US (occurrence: US)
  Receive Date: 20151012
  Receipt Date: 20151012
  Transmission Date: 20160304
  Serious: Yes (Life-Threatening, Hospitalization)
  Sender: FDA-Public Use
  Company Number: US-TARO-2015TAR00954

PATIENT
  Age: 87 Year
  Sex: Male
  Weight: 77.55 kg

DRUGS (10)
  1. ASPIRIN. [Concomitant]
     Active Substance: ASPIRIN
     Dosage: 81 MG, 1X/DAY
     Route: 048
     Dates: start: 20080104
  2. TOPROL XL [Concomitant]
     Active Substance: METOPROLOL SUCCINATE
     Dosage: 50 MG, 1X/DAY
     Route: 048
     Dates: start: 20080104
  3. LIPITOR [Concomitant]
     Active Substance: ATORVASTATIN CALCIUM
     Dosage: 10 MG, 1X/DAY
     Route: 048
     Dates: start: 20080104
  4. BLINDED INTENT TO TREAT (DICLOFENAC SODIUM GEL 3% STUDY) [Suspect]
     Active Substance: DICLOFENAC SODIUM
     Indication: ACTINIC KERATOSIS
     Dosage: UNK, 2X/DAY
     Route: 061
     Dates: start: 20150901, end: 20150930
  5. MICARDIS [Concomitant]
     Active Substance: TELMISARTAN
     Dosage: 40 MG, 1X/DAY
     Route: 048
     Dates: start: 20080729
  6. BLINDED DICLOFENAC SODIUM GEL [Suspect]
     Active Substance: DICLOFENAC SODIUM
     Indication: ACTINIC KERATOSIS
     Dosage: UNK, 2X/DAY
     Route: 061
     Dates: start: 20150901, end: 20150930
  7. ZETIA [Concomitant]
     Active Substance: EZETIMIBE
     Dosage: 10 MG, 1X/DAY
     Route: 048
     Dates: start: 20080104
  8. GLUCOSAMINE [Concomitant]
     Active Substance: GLUCOSAMINE
     Dosage: UNK, 1X/DAY
     Route: 048
     Dates: start: 20080104
  9. SOLARAZE [Suspect]
     Active Substance: DICLOFENAC SODIUM
     Indication: ACTINIC KERATOSIS
     Dosage: UNK, 2X/DAY
     Route: 061
     Dates: start: 20150901, end: 20150930
  10. PLAVIX [Concomitant]
     Active Substance: CLOPIDOGREL BISULFATE
     Dosage: 75 MG, 1X/DAY
     Route: 048
     Dates: start: 20080104

REACTIONS (1)
  - Colon cancer [Not Recovered/Not Resolved]

NARRATIVE: CASE EVENT DATE: 20150921
